FAERS Safety Report 11839071 (Version 1)
Quarter: 2015Q4

REPORT INFORMATION
  Report Type: Spontaneous
  Country: US (occurrence: US)
  Receive Date: 20151216
  Receipt Date: 20151216
  Transmission Date: 20160305
  Serious: Yes (Hospitalization, Other)
  Sender: FDA-Public Use
  Company Number: US-ZYDUS-009692

PATIENT
  Age: 60 Year
  Sex: Male

DRUGS (2)
  1. ENOXAPARIN/ENOXAPARIN SODIUM [Concomitant]
     Active Substance: ENOXAPARIN\ENOXAPARIN SODIUM
     Indication: ANTICOAGULANT THERAPY
     Dosage: 60 MG BID FOR ONE WEEK THAN CONTINUED FOR THREE MONTHS
     Route: 058
  2. WARFARIN [Suspect]
     Active Substance: WARFARIN
     Indication: ANTICOAGULANT THERAPY
     Dosage: 5 MG QD WHICH WAS DECREASED TO 2.5 MG QD
     Route: 065

REACTIONS (17)
  - Cardiac tamponade [Unknown]
  - Activated partial thromboplastin time prolonged [None]
  - Pericardial effusion [None]
  - Dyspnoea exertional [Unknown]
  - Pulmonary fibrosis [None]
  - Pericardial haemorrhage [None]
  - Atelectasis [None]
  - Paraesthesia [None]
  - Haematocrit decreased [None]
  - Haematoma [Unknown]
  - Haemorrhage [None]
  - International normalised ratio increased [Unknown]
  - Treatment failure [None]
  - Syncope [Unknown]
  - Blood pressure immeasurable [None]
  - Haemoglobin decreased [None]
  - Pleural effusion [None]
